FAERS Safety Report 17931174 (Version 1)
Quarter: 2020Q2

REPORT INFORMATION
  Report Type: Spontaneous
  Country: US (occurrence: US)
  Receive Date: 20200623
  Receipt Date: 20200623
  Transmission Date: 20200714
  Serious: Yes (Other)
  Sender: FDA-Public Use
  Company Number: US-EPIC PHARMA LLC-2020EPC00202

PATIENT
  Sex: Female

DRUGS (6)
  1. OXYCODONE [Suspect]
     Active Substance: OXYCODONE
  2. HYDROCODONE [Suspect]
     Active Substance: HYDROCODONE
  3. OXYCONTIN [Suspect]
     Active Substance: OXYCODONE HYDROCHLORIDE
  4. OXYMORPHONE [Suspect]
     Active Substance: OXYMORPHONE
  5. MORPHINE [Suspect]
     Active Substance: MORPHINE
  6. VICODIN [Suspect]
     Active Substance: ACETAMINOPHEN\HYDROCODONE BITARTRATE

REACTIONS (6)
  - Mental disorder [Unknown]
  - Limb injury [Unknown]
  - Dependence [Unknown]
  - Neck injury [Unknown]
  - Fall [Unknown]
  - Pain [Unknown]
